FAERS Safety Report 5672190-4 (Version None)
Quarter: 2008Q1

REPORT INFORMATION
  Report Type: 
  Country: None (occurrence: None)
  Receive Date: 20080319
  Receipt Date: 20080305
  Transmission Date: 20080703
  Serious: Yes (Hospitalization)
  Sender: FDA-Public Use
  Company Number: US-AMGEN-QUU268401

PATIENT
  Sex: Male

DRUGS (3)
  1. ENBREL [Suspect]
     Indication: RHEUMATOID ARTHRITIS
     Route: 058
     Dates: start: 20061111
  2. SULFASALAZINE [Concomitant]
     Route: 048
     Dates: start: 20060101
  3. RITUXAN [Concomitant]
     Dates: start: 20080228, end: 20080228

REACTIONS (6)
  - ARRHYTHMIA [None]
  - ARTHRALGIA [None]
  - FATIGUE [None]
  - HYPERSENSITIVITY [None]
  - PAIN [None]
  - TACHYCARDIA [None]
